FAERS Safety Report 15710079 (Version 1)
Quarter: 2018Q4

REPORT INFORMATION
  Report Type: Report from Study
  Country: IT (occurrence: IT)
  Receive Date: 20181211
  Receipt Date: 20181211
  Transmission Date: 20190205
  Serious: Yes (Hospitalization)
  Sender: FDA-Public Use
  Company Number: IT-PFIZER INC-2018507246

PATIENT
  Age: 44 Year
  Sex: Female

DRUGS (3)
  1. XANAX [Suspect]
     Active Substance: ALPRAZOLAM
     Indication: DEPRESSION
     Dosage: 20 ML, UNK
     Route: 048
     Dates: start: 20180517, end: 20180517
  2. NOVALGINA [Suspect]
     Active Substance: METAMIZOLE SODIUM
     Indication: BACK PAIN
     Dosage: 20 ML, UNK
     Route: 048
     Dates: start: 20180517, end: 20180517
  3. TRITTICO [Suspect]
     Active Substance: TRAZODONE HYDROCHLORIDE
     Indication: DEPRESSION
     Dosage: 30 ML, UNK
     Route: 048
     Dates: start: 20180517, end: 20180517

REACTIONS (3)
  - Sopor [Recovered/Resolved]
  - Overdose [Recovered/Resolved]
  - Drug abuse [Unknown]

NARRATIVE: CASE EVENT DATE: 20180517
